FAERS Safety Report 15129430 (Version 1)
Quarter: 2018Q3

REPORT INFORMATION
  Report Type: Spontaneous
  Country: US (occurrence: US)
  Receive Date: 20180711
  Receipt Date: 20180711
  Transmission Date: 20181010
  Serious: Yes (Other)
  Sender: FDA-Public Use
  Company Number: US-ROCHE-2151377

PATIENT
  Age: 7 Year
  Sex: Male

DRUGS (1)
  1. PULMOZYME [Suspect]
     Active Substance: DORNASE ALFA
     Indication: PRODUCT USED FOR UNKNOWN INDICATION
     Dosage: 1 YEAR 1 MG/ML
     Route: 065

REACTIONS (2)
  - Staphylococcal infection [Unknown]
  - Lung infection pseudomonal [Unknown]

NARRATIVE: CASE EVENT DATE: 20180625
